FAERS Safety Report 12348539 (Version 1)
Quarter: 2016Q2

REPORT INFORMATION
  Report Type: Other
  Country: US (occurrence: US)
  Receive Date: 20160509
  Receipt Date: 20160509
  Transmission Date: 20160815
  Serious: Yes (Death)
  Sender: FDA-Public Use
  Company Number: US-DUSA PHARMACEUTICALS, INC.-1051722

PATIENT

DRUGS (1)
  1. LEVULAN KERASTICK [Suspect]
     Active Substance: AMINOLEVULINIC ACID HYDROCHLORIDE
     Indication: NEOPLASM
     Route: 048

REACTIONS (7)
  - Respiratory failure [None]
  - Sepsis [Fatal]
  - Pneumonia [None]
  - Hypoxia [Fatal]
  - Pulmonary oedema [Fatal]
  - Administration site oedema [Recovered/Resolved]
  - Pneumothorax [Fatal]
